FAERS Safety Report 4276357-1 (Version None)
Quarter: 2004Q1

REPORT INFORMATION
  Report Type: 
  Country: None (occurrence: None)
  Receive Date: 20040116
  Receipt Date: 20040109
  Transmission Date: 20041129
  Serious: Yes (Hospitalization)
  Sender: FDA-Public Use
  Company Number: 001-0981-996729

PATIENT
  Age: 71 Year
  Sex: Male
  Weight: 295 kg

DRUGS (6)
  1. ATORVASTATIN (ATORVASTATIN) [Suspect]
     Indication: HYPERLIPIDAEMIA
     Dosage: SEE IMAGE
     Route: 048
     Dates: start: 19990104
  2. ATORVASTATIN (ATORVASTATIN) [Suspect]
     Indication: HYPERLIPIDAEMIA
     Dosage: SEE IMAGE
     Route: 048
     Dates: start: 19990225
  3. METOPROLOL SUCCINATE [Concomitant]
  4. VITAMIN E [Concomitant]
  5. ACETYLSALICYLIC ACID SRT [Concomitant]
  6. IRBESARTAN, HYDROCHLOROTHIAZIDE (HYDROCHLOROTHIAZIDE, IRBESARTAN) [Concomitant]

REACTIONS (4)
  - BENIGN PROSTATIC HYPERPLASIA [None]
  - PAIN [None]
  - RENAL SCAN ABNORMAL [None]
  - URINARY HESITATION [None]
